FAERS Safety Report 8180418-4 (Version None)
Quarter: 2012Q1

REPORT INFORMATION
  Report Type: 
  Country: None (occurrence: None)
  Receive Date: 20120229
  Receipt Date: 20120217
  Transmission Date: 20120608
  Serious: Yes (Life-Threatening, Hospitalization)
  Sender: FDA-Public Use
  Company Number: 2012SP009165

PATIENT
  Age: 56 Year
  Sex: Male

DRUGS (3)
  1. VICTRELIS [Suspect]
     Indication: HEPATITIS C
  2. VIRAFERONPEG [Suspect]
     Indication: HEPATITIS C
     Dosage: 1 DF;QOW
     Dates: end: 20111101
  3. REBETOL [Suspect]
     Indication: HEPATITIS C

REACTIONS (15)
  - ANAEMIA [None]
  - HYPOGLYCAEMIA [None]
  - DIALYSIS [None]
  - BREATH ODOUR [None]
  - ASTHENIA [None]
  - FATIGUE [None]
  - GASTROINTESTINAL HAEMORRHAGE [None]
  - IRRITABILITY [None]
  - THROMBOCYTOPENIA [None]
  - JAUNDICE [None]
  - RENAL FAILURE [None]
  - ENCEPHALOPATHY [None]
  - GENERAL PHYSICAL HEALTH DETERIORATION [None]
  - BLOOD BILIRUBIN INCREASED [None]
  - ASCITES [None]
